FAERS Safety Report 20209252 (Version 1)
Quarter: 2021Q4

REPORT INFORMATION
  Report Type: Report from Study
  Country: FR (occurrence: FR)
  Receive Date: 20211220
  Receipt Date: 20211220
  Transmission Date: 20220303
  Serious: Yes (Death, Hospitalization)
  Sender: FDA-Public Use
  Company Number: FR-AMGEN-FRACT2021144167

PATIENT
  Age: 71 Year
  Sex: Male
  Weight: 87 kg

DRUGS (13)
  1. PANITUMUMAB [Suspect]
     Active Substance: PANITUMUMAB
     Indication: Colorectal cancer metastatic
     Dosage: 408 MILLIGRAM, EVERY CYCLE/ 29 DAY
     Route: 042
     Dates: start: 20210811, end: 20210908
  2. ELOXATIN [Suspect]
     Active Substance: OXALIPLATIN
     Indication: Colorectal cancer metastatic
     Dosage: 151.30 MILLIGRAM, EVERY CYCLE/29 DAY
     Route: 042
     Dates: start: 20210811, end: 20210908
  3. LEUCOVORIN [Suspect]
     Active Substance: LEUCOVORIN
     Indication: Colorectal cancer metastatic
     Dosage: 956 MILLIGRAM/ 29 DAY
     Route: 042
     Dates: start: 20210811, end: 20210908
  4. FLUOROURACIL [Suspect]
     Active Substance: FLUOROURACIL
     Indication: Colorectal cancer metastatic
     Dosage: 4300 MILLIGRAM/ 31 DAYS
     Route: 042
     Dates: start: 20210811, end: 20210910
  5. FLUOROURACIL [Suspect]
     Active Substance: FLUOROURACIL
     Dosage: 712 MILLIGRAM, 29 DAYS
     Route: 040
     Dates: start: 20210811, end: 20210910
  6. CRESTOR [Concomitant]
     Active Substance: ROSUVASTATIN CALCIUM
     Indication: Hypercholesterolaemia
     Dosage: 5 MILLIGRAM, QD
     Route: 048
     Dates: start: 2000
  7. COVERAM [Concomitant]
     Active Substance: AMLODIPINE\PERINDOPRIL
     Indication: Hypertension
     Dosage: 10 MILLIGRAM, QD
     Route: 048
  8. ZOPICLONE [Concomitant]
     Active Substance: ZOPICLONE
     Indication: Insomnia
     Dosage: UNK
     Route: 048
     Dates: start: 20210825
  9. SODIUM BICARBONATE [Concomitant]
     Active Substance: SODIUM BICARBONATE
     Indication: Stomatitis
     Dosage: UNK
     Route: 048
     Dates: start: 20210813
  10. ONDANSETRON [Concomitant]
     Active Substance: ONDANSETRON
     Indication: Prophylaxis of nausea and vomiting
     Dosage: UNK
     Route: 048
     Dates: start: 20210811
  11. SMECTA [Concomitant]
     Active Substance: MONTMORILLONITE
     Indication: Prophylaxis against diarrhoea
     Dosage: UNK
     Route: 048
     Dates: start: 20210908
  12. DAPTOMYCIN [Concomitant]
     Active Substance: DAPTOMYCIN
     Indication: Hypotension
     Dosage: UNK
  13. DAPTOMYCIN [Concomitant]
     Active Substance: DAPTOMYCIN
     Indication: Mucosal inflammation

REACTIONS (1)
  - Diarrhoea [Fatal]

NARRATIVE: CASE EVENT DATE: 20210907
